FAERS Safety Report 14676357 (Version 2)
Quarter: 2018Q2

REPORT INFORMATION
  Report Type: Spontaneous
  Country: TW (occurrence: TW)
  Receive Date: 20180323
  Receipt Date: 20180402
  Transmission Date: 20180711
  Serious: Yes (Other)
  Sender: FDA-Public Use
  Company Number: TW-GILEAD-2018-0327832

PATIENT
  Age: 84 Year
  Sex: Male

DRUGS (9)
  1. RIBAVIRIN. [Suspect]
     Active Substance: RIBAVIRIN
     Indication: CHRONIC HEPATITIS C
     Dosage: 400 MG, QD
     Route: 065
     Dates: start: 20180217
  2. ISOSORBIDE. [Concomitant]
     Active Substance: ISOSORBIDE
  3. FUROSEMIDE. [Concomitant]
     Active Substance: FUROSEMIDE
  4. MEPTIN [Concomitant]
     Active Substance: PROCATEROL HYDROCHLORIDE
  5. SOVALDI [Suspect]
     Active Substance: SOFOSBUVIR
     Indication: CHRONIC HEPATITIS C
     Dosage: 1 DF, UNK
     Route: 048
     Dates: start: 20180217
  6. AMINOPHYLLINE. [Concomitant]
     Active Substance: AMINOPHYLLINE
  7. LEVOCETIRIZINE [Concomitant]
     Active Substance: LEVOCETIRIZINE
  8. SENNOSIDE                          /00571901/ [Concomitant]
     Active Substance: SENNOSIDES A AND B
  9. ACETYLCYSTEINE. [Concomitant]
     Active Substance: ACETYLCYSTEINE

REACTIONS (4)
  - Asthenia [Unknown]
  - Back pain [Unknown]
  - Dyspnoea [Unknown]
  - Metastases to bone [Unknown]

NARRATIVE: CASE EVENT DATE: 201803
